FAERS Safety Report 4489225-7 (Version None)
Quarter: 2004Q4

REPORT INFORMATION
  Report Type: 
  Country: None (occurrence: None)
  Receive Date: 20041029
  Receipt Date: 20040909
  Transmission Date: 20050328
  Serious: Yes (Disabling, Other)
  Sender: FDA-Public Use
  Company Number: PT-MERCK-0409PRT00009

PATIENT
  Age: 55 Year
  Sex: Male

DRUGS (6)
  1. ZOCOR [Suspect]
     Indication: HYPERCHOLESTEROLAEMIA
     Route: 048
     Dates: start: 20040822
  2. ZOCOR [Suspect]
     Route: 048
     Dates: start: 20040301
  3. ZOCOR [Suspect]
     Route: 048
     Dates: start: 20030701, end: 20040301
  4. ATORVASTATIN CALCIUM [Suspect]
     Indication: HYPERCHOLESTEROLAEMIA
     Route: 048
     Dates: start: 20030701, end: 20031201
  5. COZAAR [Concomitant]
     Indication: HYPERTENSION
     Route: 048
     Dates: start: 19970101
  6. BROMAZEPAM [Concomitant]
     Route: 048
     Dates: start: 19940101

REACTIONS (4)
  - CALCINOSIS [None]
  - CAROTID ARTERY ATHEROMA [None]
  - CORONARY ARTERY ATHEROSCLEROSIS [None]
  - MUSCLE RUPTURE [None]
